FAERS Safety Report 19241147 (Version 1)
Quarter: 2021Q2

REPORT INFORMATION
  Report Type: Spontaneous
  Country: US (occurrence: US)
  Receive Date: 20210511
  Receipt Date: 20210511
  Transmission Date: 20210717
  Serious: No
  Sender: FDA-Public Use
  Company Number: None

PATIENT
  Age: 44 Year
  Sex: Male

DRUGS (1)
  1. DIMETHYL FUMARATE DR 240MG MYLAN [Suspect]
     Active Substance: DIMETHYL FUMARATE
     Indication: MULTIPLE SCLEROSIS
     Route: 048
     Dates: start: 20210410

REACTIONS (5)
  - Drug ineffective [None]
  - Lacrimation increased [None]
  - Sinus disorder [None]
  - Hypoaesthesia [None]
  - Condition aggravated [None]

NARRATIVE: CASE EVENT DATE: 202104
